FAERS Safety Report 6618317-9 (Version None)
Quarter: 2010Q1

REPORT INFORMATION
  Report Type: 
  Country: None (occurrence: None)
  Receive Date: 20100302
  Receipt Date: 20100216
  Transmission Date: 20100710
  Serious: Yes (Death, Life-Threatening, Other)
  Sender: FDA-Public Use
  Company Number: MC201000054

PATIENT

DRUGS (2)
  1. ANGIOMAX [Suspect]
  2. EPTIFIBATIDE (EPTIFIBATIDE) [Concomitant]

REACTIONS (7)
  - CARDIAC ARREST [None]
  - CARDIOGENIC SHOCK [None]
  - HAEMORRHAGE [None]
  - HAEMORRHAGE INTRACRANIAL [None]
  - ISCHAEMIA [None]
  - SHOCK HAEMORRHAGIC [None]
  - THROMBOSIS IN DEVICE [None]
